FAERS Safety Report 14848203 (Version 1)
Quarter: 2018Q2

REPORT INFORMATION
  Report Type: Spontaneous
  Country: IN (occurrence: IN)
  Receive Date: 20180504
  Receipt Date: 20180504
  Transmission Date: 20180711
  Serious: Yes (Hospitalization, Other)
  Sender: FDA-Public Use
  Company Number: IN-IMPAX LABORATORIES, INC-2018-IPXL-01468

PATIENT
  Age: 6 Year
  Sex: Female

DRUGS (1)
  1. HYDROCORTISONE. [Suspect]
     Active Substance: HYDROCORTISONE
     Indication: ADRENOGENITAL SYNDROME
     Dosage: UNK
     Route: 065

REACTIONS (2)
  - Virilism [Recovered/Resolved]
  - Hypertension [Recovered/Resolved]
